FAERS Safety Report 7492579-0 (Version None)
Quarter: 2011Q2

REPORT INFORMATION
  Report Type: 
  Country: None (occurrence: None)
  Receive Date: 20110519
  Receipt Date: 20110421
  Transmission Date: 20111010
  Serious: No
  Sender: FDA-Public Use
  Company Number: US-BAYER-2011-035566

PATIENT
  Age: 89 Year
  Sex: Male
  Weight: 79.365 kg

DRUGS (1)
  1. ALEVE (CAPLET) [Suspect]
     Indication: BACK PAIN
     Dosage: TOOK 1 AND THAN 2 MORE 4 HOURS LATER
     Route: 048
     Dates: start: 20110421, end: 20110421

REACTIONS (4)
  - BACK PAIN [None]
  - FATIGUE [None]
  - FEELING ABNORMAL [None]
  - ASTHENIA [None]
